FAERS Safety Report 18945090 (Version 1)
Quarter: 2021Q1

REPORT INFORMATION
  Report Type: Other
  Country: US (occurrence: US)
  Receive Date: 20210226
  Receipt Date: 20210226
  Transmission Date: 20210420
  Serious: Yes (Other)
  Sender: FDA-Public Use
  Company Number: US-APOTEX-2021AP004113

PATIENT
  Sex: Male

DRUGS (1)
  1. RANITIDINE. [Suspect]
     Active Substance: RANITIDINE
     Indication: PRODUCT USED FOR UNKNOWN INDICATION
     Dosage: UNK
     Route: 065
     Dates: start: 200101, end: 200606

REACTIONS (7)
  - Nasal cavity cancer [Unknown]
  - Oesophageal carcinoma [Unknown]
  - Leukaemia [Unknown]
  - Renal cancer [Unknown]
  - Thyroid cancer [Unknown]
  - Throat cancer [Unknown]
  - Prostate cancer [Unknown]

NARRATIVE: CASE EVENT DATE: 200406
